FAERS Safety Report 5319167-6 (Version None)
Quarter: 2007Q2

REPORT INFORMATION
  Report Type: 
  Country: None (occurrence: None)
  Receive Date: 20070508
  Receipt Date: 20070501
  Transmission Date: 20071010
  Serious: Yes (Death, Hospitalization)
  Sender: FDA-Public Use
  Company Number: US-JNJFOC-20060902453

PATIENT
  Age: 30 Year
  Sex: Male

DRUGS (3)
  1. ASPIRIN [Suspect]
     Indication: SUICIDE ATTEMPT
     Dosage: UNKNOWN
  2. MIRTAZAPINE [Concomitant]
  3. NICOTINE [Concomitant]

REACTIONS (2)
  - COMPLETED SUICIDE [None]
  - INTENTIONAL OVERDOSE [None]
